FAERS Safety Report 17362329 (Version 1)
Quarter: 2020Q1

REPORT INFORMATION
  Report Type: Spontaneous
  Country: US (occurrence: US)
  Receive Date: 20200201
  Receipt Date: 20200201
  Transmission Date: 20200409
  Serious: Yes (Other)
  Sender: FDA-Public Use
  Company Number: None

PATIENT
  Age: 74 Year
  Sex: Female

DRUGS (1)
  1. DULOXETINE. [Suspect]
     Active Substance: DULOXETINE
     Route: 048
     Dates: start: 20200121, end: 20200129

REACTIONS (1)
  - Syncope [None]

NARRATIVE: CASE EVENT DATE: 20200131
